FAERS Safety Report 20947274 (Version 1)
Quarter: 2022Q2

REPORT INFORMATION
  Report Type: Spontaneous
  Country: US (occurrence: US)
  Receive Date: 20220610
  Receipt Date: 20220610
  Transmission Date: 20220721
  Serious: No
  Sender: FDA-Public Use
  Company Number: US-009507513-2206USA001526

PATIENT
  Sex: Male

DRUGS (4)
  1. MOLNUPIRAVIR [Suspect]
     Active Substance: MOLNUPIRAVIR
     Dosage: 800 MILLIGRAM, Q12H
     Route: 048
  2. MUCINEX [Concomitant]
     Active Substance: GUAIFENESIN
     Indication: Nasopharyngitis
  3. MUCINEX [Concomitant]
     Active Substance: GUAIFENESIN
     Indication: Influenza
  4. MUCINEX [Concomitant]
     Active Substance: GUAIFENESIN
     Indication: Oropharyngeal pain

REACTIONS (1)
  - Insomnia [Unknown]
